FAERS Safety Report 9283847 (Version 2)
Quarter: 2013Q2

REPORT INFORMATION
  Report Type: Spontaneous
  Country: US (occurrence: US)
  Receive Date: 20130510
  Receipt Date: 20130625
  Transmission Date: 20140414
  Serious: Yes (Other)
  Sender: FDA-Public Use
  Company Number: US-PFIZER INC-2013142261

PATIENT
  Age: 59 Year
  Sex: Female
  Weight: 72.6 kg

DRUGS (2)
  1. LEVOXYL [Suspect]
     Indication: HYPOTHYROIDISM
     Dosage: 0.125 MG, 1X/DAY
     Dates: start: 198201, end: 20130427
  2. PREMARIN [Concomitant]
     Indication: RADICAL HYSTERECTOMY
     Dosage: UNK, 1X/DAY

REACTIONS (6)
  - Goitre [Not Recovered/Not Resolved]
  - Arthralgia [Not Recovered/Not Resolved]
  - Joint swelling [Not Recovered/Not Resolved]
  - Headache [Not Recovered/Not Resolved]
  - Oropharyngeal pain [Not Recovered/Not Resolved]
  - Asthenia [Not Recovered/Not Resolved]
